FAERS Safety Report 7514715-X (Version None)
Quarter: 2011Q2

REPORT INFORMATION
  Report Type: 
  Country: None (occurrence: None)
  Receive Date: 20110601
  Receipt Date: 20110517
  Transmission Date: 20111010
  Serious: Yes (Hospitalization, Other)
  Sender: FDA-Public Use
  Company Number: US-BAYER-2011-026255

PATIENT
  Age: 42 Year
  Sex: Female
  Weight: 82 kg

DRUGS (10)
  1. ACETAMINOPHEN [Concomitant]
  2. METOPROLOL TARTRATE [Concomitant]
  3. YASMIN [Suspect]
  4. FLUTICASONE PROPIONATE [Concomitant]
     Indication: ASTHMA
     Dosage: UNK
     Dates: start: 20070401
  5. PRILOSEC [Concomitant]
  6. ADVAIR DISKUS 100/50 [Concomitant]
     Indication: ASTHMA
     Dosage: UNK
     Dates: start: 20020101
  7. NAPROXEN (ALEVE) [Concomitant]
     Route: 048
  8. TORADOL [Concomitant]
  9. YASMIN [Suspect]
     Indication: PREMENSTRUAL SYNDROME
     Dosage: UNK
     Dates: start: 20070701, end: 20090401
  10. PREDNISONE [Concomitant]

REACTIONS (4)
  - PULMONARY EMBOLISM [None]
  - OESOPHAGITIS [None]
  - EMOTIONAL DISTRESS [None]
  - INJURY [None]
